FAERS Safety Report 8557880-8 (Version None)
Quarter: 2012Q3

REPORT INFORMATION
  Report Type: 
  Country: None (occurrence: None)
  Receive Date: 20120801
  Receipt Date: 20120724
  Transmission Date: 20120928
  Serious: Yes (Hospitalization, Other)
  Sender: FDA-Public Use
  Company Number: US-US-EMD SERONO, INC.-7150305

PATIENT
  Sex: Male
  Weight: 102 kg

DRUGS (1)
  1. EGRIFTA [Suspect]
     Indication: LIPODYSTROPHY ACQUIRED
     Route: 058
     Dates: start: 20110101, end: 20120501

REACTIONS (4)
  - MYOCARDIAL INFARCTION [None]
  - PNEUMONIA [None]
  - CORONARY ARTERY OCCLUSION [None]
  - BRONCHITIS [None]
